FAERS Safety Report 6143164-4 (Version None)
Quarter: 2009Q2

REPORT INFORMATION
  Report Type: 
  Country: None (occurrence: None)
  Receive Date: 20090403
  Receipt Date: 20090323
  Transmission Date: 20091009
  Serious: Yes (Other)
  Sender: FDA-Public Use
  Company Number: DE-CELGENEUS-062-50794-09031524

PATIENT
  Sex: Male

DRUGS (2)
  1. VIDAZA [Suspect]
     Indication: DRUG USE FOR UNKNOWN INDICATION
     Route: 058
  2. EXJADE [Concomitant]
     Route: 065

REACTIONS (1)
  - HEPATIC CIRRHOSIS [None]
